FAERS Safety Report 4743938-8 (Version None)
Quarter: 2005Q3

REPORT INFORMATION
  Report Type: 
  Country: None (occurrence: None)
  Receive Date: 20050809
  Receipt Date: 20050714
  Transmission Date: 20060218
  Serious: Yes (Other)
  Sender: FDA-Public Use
  Company Number: 805#1#2005-00052

PATIENT
  Age: 1 Month
  Sex: Female

DRUGS (5)
  1. ALPROSTADIL [Suspect]
     Indication: PATENT DUCTUS ARTERIOSUS
     Route: 041
     Dates: start: 19950519, end: 19950530
  2. FUROSEMIDE [Concomitant]
  3. SPIRONOLACTONE [Concomitant]
  4. FERRIC PYOPHOSPHATE, SOLUBLE (CYANOCOBALAMIN, LYSINE HYDROCHLORIDE, PY [Concomitant]
  5. ERYTHROMYCIN/ETHYLSUCCINATE (ERYTHROMYCIN) [Concomitant]

REACTIONS (3)
  - CONVULSION NEONATAL [None]
  - NEONATAL APNOEIC ATTACK [None]
  - NEONATAL HYPONATRAEMIA [None]
